FAERS Safety Report 7514850-6 (Version None)
Quarter: 2011Q2

REPORT INFORMATION
  Report Type: 
  Country: None (occurrence: None)
  Receive Date: 20110526
  Receipt Date: 20110526
  Transmission Date: 20111010
  Serious: Yes (Hospitalization)
  Sender: FDA-Public Use
  Company Number: None

PATIENT
  Sex: Male
  Weight: 55.1 kg

DRUGS (2)
  1. CISPLATIN [Suspect]
     Dosage: 43 MG
     Dates: end: 20110516
  2. TAXOL [Suspect]
     Dosage: 86 MG
     Dates: end: 20110516

REACTIONS (5)
  - DEHYDRATION [None]
  - DYSPHAGIA [None]
  - NAUSEA [None]
  - VOMITING [None]
  - PAIN [None]
